FAERS Safety Report 5794284-5 (Version None)
Quarter: 2008Q2

REPORT INFORMATION
  Report Type: 
  Country: None (occurrence: None)
  Receive Date: 20080625
  Receipt Date: 20080618
  Transmission Date: 20081010
  Serious: Yes (Other)
  Sender: FDA-Public Use
  Company Number: CHPA2008US10244

PATIENT
  Sex: Female

DRUGS (1)
  1. 4 WAY UNKNOWN (NCH) (UNKNOWN) [Suspect]
     Indication: NASAL CONGESTION

REACTIONS (1)
  - DRUG DEPENDENCE [None]
